FAERS Safety Report 23759632 (Version 2)
Quarter: 2024Q2

REPORT INFORMATION
  Report Type: Report from Study
  Country: DE (occurrence: DE)
  Receive Date: 20240419
  Receipt Date: 20240424
  Transmission Date: 20240716
  Serious: Yes (Hospitalization)
  Sender: FDA-Public Use
  Company Number: DE-002147023-NVSC2024DE072683

PATIENT
  Sex: Female
  Weight: 43.5 kg

DRUGS (8)
  1. COSENTYX [Suspect]
     Active Substance: SECUKINUMAB
     Indication: Axial spondyloarthritis
     Dosage: 150 MG, ONCE/SINGLE
     Route: 058
     Dates: start: 20230720, end: 20230720
  2. COSENTYX [Suspect]
     Active Substance: SECUKINUMAB
     Dosage: 150 MG, ONCE/SINGLE
     Route: 058
     Dates: start: 20230727, end: 20230727
  3. COSENTYX [Suspect]
     Active Substance: SECUKINUMAB
     Dosage: 150 MG, ONCE/SINGLE
     Route: 058
     Dates: start: 20230803, end: 20230803
  4. COSENTYX [Suspect]
     Active Substance: SECUKINUMAB
     Dosage: 150 MG, ONCE/SINGLE
     Route: 058
     Dates: start: 20230810, end: 20230810
  5. CHOLECALCIFEROL [Concomitant]
     Active Substance: CHOLECALCIFEROL
     Indication: Osteoporosis
     Dosage: 20000 IU, QD
     Route: 048
     Dates: start: 202307
  6. PREDNISOLONE [Concomitant]
     Active Substance: PREDNISOLONE
     Indication: Axial spondyloarthritis
     Dosage: 20 MG (2.5 X DAILY)
     Route: 048
     Dates: start: 202307
  7. PANTOPRAZOLE [Concomitant]
     Active Substance: PANTOPRAZOLE
     Indication: Prophylaxis
     Dosage: 40 MG, BID
     Route: 048
     Dates: start: 202307
  8. FOLIC ACID [Concomitant]
     Active Substance: FOLIC ACID
     Indication: Prophylaxis
     Dosage: 5 MG, QD
     Route: 048
     Dates: start: 202307

REACTIONS (2)
  - Condition aggravated [Not Recovered/Not Resolved]
  - Axial spondyloarthritis [Not Recovered/Not Resolved]

NARRATIVE: CASE EVENT DATE: 20240301
